FAERS Safety Report 19977892 (Version 2)
Quarter: 2021Q4

REPORT INFORMATION
  Report Type: Report from Study
  Country: CN (occurrence: CN)
  Receive Date: 20211020
  Receipt Date: 20211229
  Transmission Date: 20220303
  Serious: Yes (Other)
  Sender: FDA-Public Use
  Company Number: CN-002147023-NVSC2021CN232452

PATIENT

DRUGS (2)
  1. RUXOLITINIB [Suspect]
     Active Substance: RUXOLITINIB
     Indication: Myelofibrosis
     Dosage: UNK
     Route: 048
  2. DANAZOL [Suspect]
     Active Substance: DANAZOL
     Indication: Product used for unknown indication
     Dosage: UNK
     Route: 048

REACTIONS (2)
  - Pneumonia [Unknown]
  - Platelet count decreased [Recovering/Resolving]
